FAERS Safety Report 23955084 (Version 2)
Quarter: 2024Q3

REPORT INFORMATION
  Report Type: Spontaneous
  Country: US (occurrence: US)
  Receive Date: 20240610
  Receipt Date: 20240725
  Transmission Date: 20241017
  Serious: No
  Sender: DR REDDYS
  Company Number: US-E2BLSMVVAL-SPO/USA/24/0008099

PATIENT
  Age: 81 Year
  Sex: Female

DRUGS (1)
  1. BUPRENORPHINE\NALOXONE [Suspect]
     Active Substance: BUPRENORPHINE\NALOXONE
     Indication: Breakthrough pain
     Dosage: 30 COUNT
     Route: 060
     Dates: start: 20140525

REACTIONS (1)
  - Product dose omission issue [Unknown]
